FAERS Safety Report 5442415-9 (Version None)
Quarter: 2007Q3

REPORT INFORMATION
  Report Type: 
  Country: None (occurrence: None)
  Receive Date: 20070829
  Receipt Date: 20070816
  Transmission Date: 20080115
  Serious: Yes (Death, Life-Threatening, Hospitalization)
  Sender: FDA-Public Use
  Company Number: 2007US001839

PATIENT
  Age: 29 Year
  Sex: Female

DRUGS (5)
  1. PROGRAF [Suspect]
     Indication: HEART TRANSPLANT REJECTION
  2. PREDNISONE TAB [Concomitant]
  3. MYCOPHENOLATE MOFETIL [Concomitant]
  4. CAMPATH [Concomitant]
  5. MILRINONE (MILRINONE) [Concomitant]

REACTIONS (13)
  - ANOXIC ENCEPHALOPATHY [None]
  - CANDIDURIA [None]
  - CARDIAC ARREST [None]
  - CARDIOGENIC SHOCK [None]
  - DRUG LEVEL DECREASED [None]
  - HEART TRANSPLANT REJECTION [None]
  - INFECTION IN AN IMMUNOCOMPROMISED HOST [None]
  - KLEBSIELLA INFECTION [None]
  - STAPHYLOCOCCAL INFECTION [None]
  - TREATMENT NONCOMPLIANCE [None]
  - URINARY TRACT INFECTION BACTERIAL [None]
  - URINARY TRACT INFECTION FUNGAL [None]
  - VENTRICULAR FIBRILLATION [None]
